FAERS Safety Report 8959645 (Version 1)
Quarter: 2012Q4

REPORT INFORMATION
  Report Type: 
  Country: US (occurrence: US)
  Receive Date: 20121212
  Receipt Date: 20121212
  Transmission Date: 20130627
  Serious: No
  Sender: FDA-Public Use
  Company Number: US-TEVA-367312USA

PATIENT
  Age: 0 Year
  Sex: Male

DRUGS (2)
  1. BUDESONIDE [Suspect]
     Indication: COUGH
     Route: 055
     Dates: start: 20121022
  2. BUDESONIDE [Suspect]
     Indication: PULMONARY CONGESTION

REACTIONS (1)
  - Rash [Recovered/Resolved]
